FAERS Safety Report 10405950 (Version 1)
Quarter: 2014Q3

REPORT INFORMATION
  Report Type: Spontaneous
  Country: US (occurrence: None)
  Receive Date: 20140822
  Receipt Date: 20140822
  Transmission Date: 20150326
  Serious: Yes (Other)
  Sender: FDA-Public Use
  Company Number: None

PATIENT
  Age: 28 Year
  Sex: Male
  Weight: 101.15 kg

DRUGS (2)
  1. DEPAKOTE ER [Suspect]
     Active Substance: DIVALPROEX SODIUM
     Indication: MAJOR DEPRESSION
     Dosage: 500 MG X4 2000MG ONCE DAILY PO
     Route: 048
     Dates: start: 20110516
  2. DEPAKOTE ER [Suspect]
     Active Substance: DIVALPROEX SODIUM
     Indication: OBSESSIVE-COMPULSIVE DISORDER
     Dosage: 500 MG X4 2000MG ONCE DAILY PO
     Route: 048
     Dates: start: 20110516

REACTIONS (4)
  - Diarrhoea [None]
  - Vomiting [None]
  - Abdominal discomfort [None]
  - Nausea [None]

NARRATIVE: CASE EVENT DATE: 20111011
